FAERS Safety Report 17052268 (Version 1)
Quarter: 2019Q4

REPORT INFORMATION
  Report Type: Spontaneous
  Country: US (occurrence: US)
  Receive Date: 20191120
  Receipt Date: 20191120
  Transmission Date: 20200122
  Serious: Yes (Other)
  Sender: FDA-Public Use
  Company Number: US-AMERICAN REGENT INC-2019002530

PATIENT
  Age: 19 Year
  Sex: Female

DRUGS (2)
  1. HYPERTONIC SALINE SOLUTION [Suspect]
     Active Substance: SODIUM CHLORIDE
     Indication: CEREBRAL HAEMORRHAGE
     Dosage: UNK
     Route: 065
  2. MANNITOL INJECTION, USP (4050-25) [Suspect]
     Active Substance: MANNITOL
     Indication: CEREBRAL HAEMORRHAGE
     Dosage: UNK
     Route: 065

REACTIONS (3)
  - Product use in unapproved indication [Unknown]
  - Drug ineffective for unapproved indication [Not Recovered/Not Resolved]
  - Cerebral haemorrhage [Not Recovered/Not Resolved]
